FAERS Safety Report 21220690 (Version 1)
Quarter: 2022Q3

REPORT INFORMATION
  Report Type: Spontaneous
  Country: IE (occurrence: IE)
  Receive Date: 20220817
  Receipt Date: 20220817
  Transmission Date: 20221026
  Serious: Yes (Other)
  Sender: FDA-Public Use
  Company Number: IE-SUN PHARMACEUTICAL INDUSTRIES LTD-2022RR-348644

PATIENT
  Age: 30 Year
  Sex: Female

DRUGS (8)
  1. PREGABALIN [Suspect]
     Active Substance: PREGABALIN
     Indication: Long-chain acyl-coenzyme A dehydrogenase deficiency
     Dosage: UNK
     Route: 065
  2. CEFUROXIME [Suspect]
     Active Substance: CEFUROXIME
     Indication: Antibiotic prophylaxis
     Dosage: 1500 MILLIGRAM, UNK
     Route: 042
  3. TOPIRAMATE [Suspect]
     Active Substance: TOPIRAMATE
     Indication: Long-chain acyl-coenzyme A dehydrogenase deficiency
     Dosage: UNK
     Route: 065
  4. ONDANSETRON [Suspect]
     Active Substance: ONDANSETRON
     Indication: Nausea
     Dosage: UNK
     Route: 065
  5. FENTANYL [Concomitant]
     Active Substance: FENTANYL
     Indication: Anaesthesia
     Dosage: 20 MICROGRAM, UNK
     Route: 065
  6. MORPHINE [Concomitant]
     Active Substance: MORPHINE
     Indication: Anaesthesia
     Dosage: 100 MICROGRAM, UNK
     Route: 065
  7. FOLIC ACID [Concomitant]
     Active Substance: FOLIC ACID
     Indication: Product used for unknown indication
     Dosage: UNK
     Route: 065
  8. bupivacaine 0.5%/glucose [Concomitant]
     Indication: Anaesthesia
     Dosage: 320 MG/4 ML 12 MG
     Route: 065

REACTIONS (1)
  - Exposure during pregnancy [Unknown]
